FAERS Safety Report 8046235-0 (Version None)
Quarter: 2012Q1

REPORT INFORMATION
  Report Type: 
  Country: None (occurrence: None)
  Receive Date: 20120113
  Receipt Date: 20120110
  Transmission Date: 20120608
  Serious: Yes (Other)
  Sender: FDA-Public Use
  Company Number: US-PFIZER INC-K201100579

PATIENT
  Sex: Female
  Weight: 68.9 kg

DRUGS (5)
  1. SONATA [Suspect]
     Indication: INSOMNIA
     Dosage: 10 MG DAILY
     Route: 048
     Dates: start: 20100101
  2. LYRICA [Suspect]
     Indication: FIBROMYALGIA
     Dosage: 150 MG, 4X/DAY
     Route: 048
     Dates: start: 20100101
  3. LOVASTATIN [Suspect]
     Indication: BLOOD CHOLESTEROL INCREASED
     Dosage: 20 MG DAILY
     Route: 048
  4. CALCIUM CARBONATE [Concomitant]
     Indication: DYSPEPSIA
     Dosage: UNK
  5. TRIAZOLAM [Suspect]
     Indication: INSOMNIA
     Dosage: 0.25 MG DAILY
     Route: 048
     Dates: start: 20100101

REACTIONS (2)
  - INSULIN RESISTANCE [None]
  - VAGINAL ODOUR [None]
